FAERS Safety Report 7670831-3 (Version None)
Quarter: 2011Q3

REPORT INFORMATION
  Report Type: 
  Country: None (occurrence: None)
  Receive Date: 20110809
  Receipt Date: 20110729
  Transmission Date: 20111222
  Serious: Yes (Hospitalization)
  Sender: FDA-Public Use
  Company Number: BR-US-EMD SERONO, INC.-7053790

PATIENT
  Sex: Male

DRUGS (3)
  1. AMYTRIPTYLINE [Concomitant]
  2. MANTIDAN [Concomitant]
  3. REBIF [Suspect]
     Indication: RELAPSING-REMITTING MULTIPLE SCLEROSIS
     Dates: start: 20090901

REACTIONS (3)
  - CHILLS [None]
  - HOSPITALISATION [None]
  - ARTHRALGIA [None]
